FAERS Safety Report 9557294 (Version 1)
Quarter: 2013Q3

REPORT INFORMATION
  Report Type: Report from Study
  Country: AR (occurrence: AR)
  Receive Date: 20130926
  Receipt Date: 20130926
  Transmission Date: 20140515
  Serious: Yes (Other)
  Sender: FDA-Public Use
  Company Number: PHHY2013AR107425

PATIENT
  Sex: Female

DRUGS (1)
  1. EXFORGE [Suspect]
     Indication: HYPERTENSION
     Dosage: 1 DF(320/10MG), A DAY
     Route: 048

REACTIONS (5)
  - Diabetes mellitus [Unknown]
  - Dizziness [Unknown]
  - Vomiting [Unknown]
  - Visual impairment [Unknown]
  - Local swelling [Recovering/Resolving]
